FAERS Safety Report 5112215-8 (Version None)
Quarter: 2006Q3

REPORT INFORMATION
  Report Type: 
  Country: None (occurrence: None)
  Receive Date: 20060922
  Receipt Date: 20060515
  Transmission Date: 20061208
  Serious: No
  Sender: FDA-Public Use
  Company Number: US-GLAXOSMITHKLINE-A0605780A

PATIENT
  Age: 88 Year
  Sex: Male

DRUGS (6)
  1. ABREVA [Suspect]
     Route: 061
     Dates: start: 20060504
  2. LOPRESSOR [Concomitant]
  3. ASPIRIN [Concomitant]
  4. PLAVIX [Concomitant]
  5. LISINOPRIL [Concomitant]
  6. BLOOD THINNER [Concomitant]

REACTIONS (4)
  - ANXIETY [None]
  - EMOTIONAL DISTRESS [None]
  - HERPES SIMPLEX [None]
  - NERVOUSNESS [None]
